FAERS Safety Report 12419424 (Version 1)
Quarter: 2016Q2

REPORT INFORMATION
  Report Type: Spontaneous
  Country: US (occurrence: US)
  Receive Date: 20160531
  Receipt Date: 20160531
  Transmission Date: 20160815
  Serious: Yes (Other)
  Sender: FDA-Public Use
  Company Number: US-SA-2016SA102740

PATIENT
  Age: 73 Year
  Sex: Female

DRUGS (4)
  1. ALIROCUMAB PREFILLED PEN [Concomitant]
     Active Substance: ALIROCUMAB
     Dates: start: 2015
  2. PRALUENT [Suspect]
     Active Substance: ALIROCUMAB
     Indication: TYPE IIA HYPERLIPIDAEMIA
     Dosage: START: NOV OR DEC 2015
     Route: 065
     Dates: start: 2015
  3. PLAVIX [Concomitant]
     Active Substance: CLOPIDOGREL BISULFATE
     Dosage: 75MG
     Dates: end: 20151224
  4. ASPIRIN. [Concomitant]
     Active Substance: ASPIRIN
     Dosage: 325MG
     Dates: end: 20151224

REACTIONS (5)
  - Arthropathy [Not Recovered/Not Resolved]
  - Skeletal muscle enzymes [Not Recovered/Not Resolved]
  - Muscle disorder [Not Recovered/Not Resolved]
  - Cerebrovascular accident [Not Recovered/Not Resolved]
  - Antinuclear antibody positive [Not Recovered/Not Resolved]

NARRATIVE: CASE EVENT DATE: 20151228
